FAERS Safety Report 7395299-6 (Version None)
Quarter: 2011Q2

REPORT INFORMATION
  Report Type: 
  Country: None (occurrence: None)
  Receive Date: 20110405
  Receipt Date: 20110331
  Transmission Date: 20111010
  Serious: No
  Sender: FDA-Public Use
  Company Number: US-PFIZER INC-2011016857

PATIENT
  Sex: Female
  Weight: 66 kg

DRUGS (16)
  1. OMEPRAZOLE [Concomitant]
     Indication: HIATUS HERNIA
     Dosage: 20 MG, 1X/DAY
     Route: 048
  2. OMEPRAZOLE [Concomitant]
     Indication: GASTROOESOPHAGEAL REFLUX DISEASE
  3. PROMETRIUM [Concomitant]
     Indication: HORMONE REPLACEMENT THERAPY
  4. ACETYLSALICYLIC ACID [Concomitant]
     Dosage: UNK
  5. TOVIAZ [Suspect]
     Indication: MICTURITION URGENCY
     Dosage: 8 MG, 1X/DAY
     Route: 048
     Dates: start: 20110301
  6. TOVIAZ [Suspect]
     Indication: URINARY INCONTINENCE
  7. COLESTYRAMINE [Concomitant]
  8. ADVAIR DISKUS 100/50 [Concomitant]
     Indication: ASTHMA
     Dosage: UNK
     Route: 055
  9. TOVIAZ [Suspect]
     Indication: HYPERTONIC BLADDER
     Dosage: 4 MG, 1X/DAY
     Route: 048
     Dates: start: 20110110
  10. PROMETRIUM [Concomitant]
     Indication: HOT FLUSH
     Dosage: 100 MG, 1X/DAY
     Route: 048
  11. VIVELLE-DOT [Concomitant]
     Indication: HORMONE REPLACEMENT THERAPY
  12. TOVIAZ [Suspect]
     Indication: URGE INCONTINENCE
  13. VIVELLE-DOT [Concomitant]
     Indication: HOT FLUSH
     Dosage: 0.05 MG, 2X/WEEK
     Route: 062
  14. LEVOXYL [Concomitant]
     Indication: THYROID DISORDER
     Dosage: 0.75 MG, 1X/DAY
     Route: 048
  15. ADVAIR DISKUS 100/50 [Concomitant]
     Indication: ASTHMA
     Dosage: 250/50
     Route: 045
  16. COLESTYRAMINE [Concomitant]
     Indication: DIARRHOEA
     Dosage: 4 G, 1X/DAY
     Route: 048

REACTIONS (3)
  - URINARY INCONTINENCE [None]
  - DRY MOUTH [None]
  - RASH [None]
